FAERS Safety Report 7200761-2 (Version None)
Quarter: 2010Q4

REPORT INFORMATION
  Report Type: 
  Country: None (occurrence: None)
  Receive Date: 20101228
  Receipt Date: 20101216
  Transmission Date: 20110411
  Serious: Yes (Hospitalization)
  Sender: FDA-Public Use
  Company Number: FR-GENENTECH-311036

PATIENT
  Sex: Male
  Weight: 80 kg

DRUGS (8)
  1. RITUXIMAB [Suspect]
     Indication: MANTLE CELL LYMPHOMA
     Dosage: 1000 MG, QAM
     Route: 042
     Dates: start: 20100618
  2. RITUXIMAB [Suspect]
     Dosage: UNK
     Route: 042
     Dates: start: 20100621
  3. CARMUSTINE [Suspect]
     Indication: MANTLE CELL LYMPHOMA
     Dosage: 620 MG, QAM
     Route: 042
     Dates: start: 20101020
  4. VEPESID [Suspect]
     Indication: MANTLE CELL LYMPHOMA
     Dosage: 820 MG, QAM
     Route: 042
     Dates: start: 20101021, end: 20101024
  5. CYTARABINE [Suspect]
     Indication: MANTLE CELL LYMPHOMA
     Dosage: 820 MG, QAM
     Route: 042
     Dates: start: 20101021, end: 20101024
  6. CYTARABINE [Suspect]
     Dosage: UNK
     Route: 042
     Dates: start: 20100618
  7. MELPHALAN [Suspect]
     Indication: MANTLE CELL LYMPHOMA
     Dosage: 285 MG, QAM
     Route: 042
     Dates: start: 20101025
  8. NEULASTA [Concomitant]
     Indication: PRODUCT USED FOR UNKNOWN INDICATION
     Dosage: UNK
     Dates: start: 20101027

REACTIONS (5)
  - BONE MARROW FAILURE [None]
  - ESCHERICHIA SEPSIS [None]
  - FEBRILE BONE MARROW APLASIA [None]
  - SEPSIS [None]
  - SHOCK [None]
